FAERS Safety Report 5614348-6 (Version None)
Quarter: 2008Q1

REPORT INFORMATION
  Report Type: 
  Country: None (occurrence: None)
  Receive Date: 20080205
  Receipt Date: 20080124
  Transmission Date: 20080703
  Serious: Yes (Hospitalization, Other)
  Sender: FDA-Public Use
  Company Number: US-PFIZER INC-2008008642

PATIENT
  Sex: Female
  Weight: 172 kg

DRUGS (5)
  1. DILANTIN [Suspect]
     Indication: EPILEPSY
  2. PHENOBARBITAL TAB [Suspect]
     Indication: EPILEPSY
  3. ALL OTHER THERAPEUTIC PRODUCTS [Suspect]
  4. FAMOTIDINE [Concomitant]
  5. ONE-A-DAY [Concomitant]

REACTIONS (4)
  - CEREBROVASCULAR ACCIDENT [None]
  - CONVULSION [None]
  - HYPERSENSITIVITY [None]
  - HYPERTENSION [None]
